FAERS Safety Report 7919720-7 (Version None)
Quarter: 2011Q4

REPORT INFORMATION
  Report Type: 
  Country: None (occurrence: None)
  Receive Date: 20111117
  Receipt Date: 20111109
  Transmission Date: 20120403
  Serious: Yes (Hospitalization)
  Sender: FDA-Public Use
  Company Number: JP-AMGEN-JPNCT2011030525

PATIENT
  Age: 52 Year
  Sex: Female
  Weight: 37 kg

DRUGS (9)
  1. OFLOXACIN [Concomitant]
     Dosage: UNK
     Route: 047
  2. PANITUMUMAB [Suspect]
     Dosage: 6 MG/KG, Q2WK
     Route: 041
     Dates: start: 20100930, end: 20101125
  3. PANITUMUMAB [Suspect]
     Indication: COLORECTAL CANCER
     Dosage: 6 MG, Q2WK
     Dates: start: 20100701, end: 20100826
  4. FLUOROMETHOLONE [Concomitant]
     Dosage: UNK
     Route: 047
  5. TS-1 [Concomitant]
     Indication: COLORECTAL CANCER
     Route: 048
     Dates: start: 20100701, end: 20101110
  6. VENA [Concomitant]
     Route: 048
  7. PYDOXAL [Concomitant]
     Route: 048
  8. IRINOTECAN HCL [Concomitant]
     Indication: COLORECTAL CANCER
     Route: 041
     Dates: start: 20100701, end: 20101110
  9. LEVOFLOXACIN [Concomitant]
     Dosage: UNK
     Route: 047

REACTIONS (3)
  - DERMATITIS [None]
  - HOSPITALISATION [None]
  - CONJUNCTIVITIS [None]
